FAERS Safety Report 7051636-3 (Version None)
Quarter: 2010Q4

REPORT INFORMATION
  Report Type: 
  Country: None (occurrence: None)
  Receive Date: 20101018
  Receipt Date: 20101018
  Transmission Date: 20110411
  Serious: Yes (Disabling, Other)
  Sender: FDA-Public Use
  Company Number: None

PATIENT
  Sex: Female
  Weight: 47.6277 kg

DRUGS (1)
  1. MIRENA [Suspect]
     Indication: CONTRACEPTION
     Dates: start: 20080508, end: 20100223

REACTIONS (10)
  - ANXIETY [None]
  - CYSTITIS [None]
  - DEPRESSION [None]
  - DEVICE DISLOCATION [None]
  - FEAR [None]
  - HAEMORRHAGE [None]
  - MOOD SWINGS [None]
  - POOR QUALITY SLEEP [None]
  - SUICIDAL IDEATION [None]
  - UTERINE PERFORATION [None]
